FAERS Safety Report 5819375-1 (Version None)
Quarter: 2008Q3

REPORT INFORMATION
  Report Type: 
  Country: None (occurrence: None)
  Receive Date: 20080723
  Receipt Date: 20080714
  Transmission Date: 20090109
  Serious: Yes (Death, Other)
  Sender: FDA-Public Use
  Company Number: AU-ASTRAZENECA-2008AP03801

PATIENT

DRUGS (1)
  1. NAROPIN [Suspect]
     Dosage: 7 MG/KG

REACTIONS (3)
  - CONVULSION [None]
  - DEATH [None]
  - OVERDOSE [None]
